FAERS Safety Report 4627636-7 (Version None)
Quarter: 2005Q2

REPORT INFORMATION
  Report Type: 
  Country: None (occurrence: None)
  Receive Date: 20050401
  Receipt Date: 20050321
  Transmission Date: 20051028
  Serious: Yes (Other)
  Sender: FDA-Public Use
  Company Number: 2005047733

PATIENT
  Weight: 80.2867 kg

DRUGS (1)
  1. DEPO-PROVERA [Suspect]
     Indication: CONTRACEPTION

REACTIONS (10)
  - ANXIETY [None]
  - BLOOD PRESSURE INCREASED [None]
  - CHEST PAIN [None]
  - CYSTITIS [None]
  - HEART RATE INCREASED [None]
  - HOT FLUSH [None]
  - METRORRHAGIA [None]
  - REFUSAL OF TREATMENT BY PATIENT [None]
  - ROSACEA [None]
  - VAGINAL HAEMORRHAGE [None]
